FAERS Safety Report 23230427 (Version 3)
Quarter: 2025Q3

REPORT INFORMATION
  Report Type: Report from Study
  Country: CA (occurrence: CA)
  Receive Date: 20231127
  Receipt Date: 20250813
  Transmission Date: 20251020
  Serious: Yes (Other)
  Sender: SANDOZ
  Company Number: CA-SANDOZ-SDZ2023CA020343

PATIENT
  Age: 67 Year
  Sex: Male

DRUGS (2)
  1. HYRIMOZ [Suspect]
     Active Substance: ADALIMUMAB-ADAZ
     Indication: Crohn^s disease
     Dosage: 40 MG;WEEKLY
     Route: 058
     Dates: start: 20230725
  2. HYRIMOZ [Suspect]
     Active Substance: ADALIMUMAB-ADAZ
     Dosage: 40 MG; ONCE EVERY TWO WEEKS
     Route: 058

REACTIONS (7)
  - Crohn^s disease [Unknown]
  - Pneumonia [Recovered/Resolved]
  - Emphysema [Unknown]
  - Lip swelling [Recovered/Resolved]
  - Fatigue [Unknown]
  - Therapy interrupted [Unknown]
  - Off label use [Unknown]

NARRATIVE: CASE EVENT DATE: 20250501
